FAERS Safety Report 6750894-X (Version None)
Quarter: 2010Q2

REPORT INFORMATION
  Report Type: 
  Country: None (occurrence: None)
  Receive Date: 20100602
  Receipt Date: 20100528
  Transmission Date: 20101027
  Serious: Yes (Death, Hospitalization, Other)
  Sender: FDA-Public Use
  Company Number: PR-BAYER-201017542NA

PATIENT
  Age: 60 Year
  Sex: Female
  Weight: 55 kg

DRUGS (41)
  1. LEUKINE [Suspect]
     Indication: DIFFUSE LARGE B-CELL LYMPHOMA
     Dosage: DAY 3 CYCLE 2 TO BE GIVEN X 4 DAYS
     Route: 058
     Dates: start: 20100315
  2. LEUKINE [Suspect]
     Dosage: DAY 3 CYCLE 3 TO BE GIVEN X 4 DAYS
     Route: 058
     Dates: start: 20100326
  3. LEUKINE [Suspect]
     Dosage: DAY 3 CYCLE 5 TO BE GIVEN X 4 DAYS
     Route: 058
     Dates: start: 20100423
  4. LEUKINE [Suspect]
     Dosage: DAY 3 CYCLE 6 TO BE GIVEN X 4 DAYS
     Route: 058
     Dates: start: 20100507
  5. LEUKINE [Suspect]
     Dosage: DAY 3 CYCLE 4 TO BE GIVEN X 4 DAYS
     Route: 058
     Dates: start: 20100409
  6. LEUKINE [Suspect]
     Dosage: DAY 3 CYCLE 1 TO BE GIVEN X 4 DAYS
     Route: 058
     Dates: start: 20100226
  7. RITUXIMAB [Suspect]
     Indication: DIFFUSE LARGE B-CELL LYMPHOMA
     Dosage: DAY 1 CYCLE 3
     Route: 042
     Dates: start: 20100325, end: 20100325
  8. RITUXIMAB [Suspect]
     Dosage: DAY 1 CYCLE 1
     Route: 042
     Dates: start: 20100224, end: 20100224
  9. RITUXIMAB [Suspect]
     Dosage: DAY 1 CYCLE 6
     Route: 042
     Dates: start: 20100506, end: 20100506
  10. RITUXIMAB [Suspect]
     Dosage: DAY 1 CYCLE 5
     Route: 042
     Dates: start: 20100422, end: 20100422
  11. RITUXIMAB [Suspect]
     Dosage: DAY 1 CYCLE 4
     Route: 042
     Dates: start: 20100408, end: 20100408
  12. RITUXIMAB [Suspect]
     Dosage: DAY 1 CYCLE 2
     Route: 042
     Dates: start: 20100310, end: 20100310
  13. CYCLOPHOSPHAMIDE [Suspect]
     Indication: DIFFUSE LARGE B-CELL LYMPHOMA
     Dosage: DAY 2 CYCLE 5
     Route: 042
     Dates: start: 20100422, end: 20100422
  14. CYCLOPHOSPHAMIDE [Suspect]
     Dosage: DAY 2 CYCLE 4
     Route: 042
     Dates: start: 20100408, end: 20100408
  15. CYCLOPHOSPHAMIDE [Suspect]
     Dosage: DAY 2 CYCLE 6
     Route: 042
     Dates: start: 20100506, end: 20100506
  16. CYCLOPHOSPHAMIDE [Suspect]
     Dosage: DAY 2 CYCLE 1
     Route: 042
     Dates: start: 20100225, end: 20100225
  17. CYCLOPHOSPHAMIDE [Suspect]
     Dosage: DAY 2 CYCLE 3
     Route: 042
     Dates: start: 20100325, end: 20100325
  18. CYCLOPHOSPHAMIDE [Suspect]
     Dosage: DAY 2 CYCLE 2
     Route: 042
     Dates: start: 20100312, end: 20100312
  19. DOXORUBICIN HCL [Suspect]
     Indication: DIFFUSE LARGE B-CELL LYMPHOMA
     Dosage: DAY 2 CYCLE 1
     Route: 042
     Dates: start: 20100225, end: 20100225
  20. DOXORUBICIN HCL [Suspect]
     Dosage: DAY 2  CYCLE 2
     Route: 042
     Dates: start: 20100312, end: 20100312
  21. DOXORUBICIN HCL [Suspect]
     Dosage: DAY 2  CYCLE 3
     Route: 042
     Dates: start: 20100325, end: 20100325
  22. DOXORUBICIN HCL [Suspect]
     Dosage: DAY 2  CYCLE 4
     Route: 042
     Dates: start: 20100408, end: 20100408
  23. DOXORUBICIN HCL [Suspect]
     Dosage: DAY 2  CYCLE 6
     Route: 042
     Dates: start: 20100506, end: 20100506
  24. DOXORUBICIN HCL [Suspect]
     Dosage: DAY 2  CYCLE 5
     Route: 042
     Dates: start: 20100422, end: 20100422
  25. VINCRISTINE [Suspect]
     Indication: DIFFUSE LARGE B-CELL LYMPHOMA
     Dosage: DAY 2 CYCLE 4
     Route: 042
     Dates: start: 20100408, end: 20100408
  26. VINCRISTINE [Suspect]
     Dosage: DAY 2 CYCLE 1
     Route: 042
     Dates: start: 20100225, end: 20100225
  27. VINCRISTINE [Suspect]
     Dosage: DAY 2 CYCLE 3
     Route: 042
     Dates: start: 20100325, end: 20100325
  28. VINCRISTINE [Suspect]
     Dosage: DAY 2 CYCLE 6
     Route: 042
     Dates: start: 20100506, end: 20100506
  29. VINCRISTINE [Suspect]
     Dosage: DAY 2 CYCLE 5
     Route: 042
     Dates: start: 20100422, end: 20100422
  30. VINCRISTINE [Suspect]
     Dosage: DAY 2 CYCLE 2
     Route: 042
     Dates: start: 20100312, end: 20100312
  31. NEULASTA [Suspect]
     Indication: DIFFUSE LARGE B-CELL LYMPHOMA
     Dosage: DAY 3 CYLCE 5
     Route: 058
     Dates: start: 20100423, end: 20100423
  32. NEULASTA [Suspect]
     Dosage: DAY 3 CYLCE 6
     Route: 058
     Dates: start: 20100507, end: 20100507
  33. NEULASTA [Suspect]
     Dosage: DAY 3 CYLCE 1
     Route: 058
     Dates: start: 20100226, end: 20100226
  34. NEULASTA [Suspect]
     Dosage: DAY 3 CYCLE 2
     Route: 058
     Dates: start: 20100315, end: 20100315
  35. NEULASTA [Suspect]
     Dosage: DAY 3 CYLCE 3
     Route: 058
     Dates: start: 20100326, end: 20100326
  36. NEULASTA [Suspect]
     Dosage: DAY 3 CYLCE 4
     Route: 058
     Dates: start: 20100409, end: 20100409
  37. SYNTHROID [Concomitant]
     Dates: start: 20091101
  38. FOSAMAX PLUS D [Concomitant]
     Dates: start: 19950101
  39. CRESTOR [Concomitant]
     Dates: start: 20070101
  40. CALCIUM + VIT D [Concomitant]
     Dates: start: 20090101
  41. VIT B12 [Concomitant]
     Dates: start: 20100201

REACTIONS (10)
  - ACUTE LUNG INJURY [None]
  - DEHYDRATION [None]
  - DEVICE RELATED INFECTION [None]
  - DIARRHOEA [None]
  - GASTRITIS [None]
  - PNEUMOMEDIASTINUM [None]
  - PNEUMONIA [None]
  - PNEUMOTHORAX [None]
  - RESPIRATORY FAILURE [None]
  - SEPTIC SHOCK [None]
